FAERS Safety Report 14861760 (Version 2)
Quarter: 2018Q2

REPORT INFORMATION
  Report Type: Report from Study
  Country: DE (occurrence: DE)
  Receive Date: 20180508
  Receipt Date: 20180607
  Transmission Date: 20180711
  Serious: Yes (Hospitalization, Other)
  Sender: FDA-Public Use
  Company Number: PHHY2018DE076988

PATIENT
  Age: 44 Year
  Sex: Male

DRUGS (2)
  1. BISOPROLOL [Concomitant]
     Active Substance: BISOPROLOL
     Indication: CARDIAC FAILURE CHRONIC
     Dosage: 10 OT, UNK
     Route: 065
     Dates: start: 2007
  2. ENTRESTO [Suspect]
     Active Substance: SACUBITRIL\VALSARTAN
     Indication: CARDIAC FAILURE
     Dosage: 200 MG, BID
     Route: 048
     Dates: start: 20170424

REACTIONS (7)
  - Diabetic foot [Recovered/Resolved]
  - Diabetes mellitus [Not Recovered/Not Resolved]
  - Sepsis [Recovered/Resolved]
  - Pneumonia [Recovered/Resolved]
  - Erysipelas [Recovered/Resolved]
  - Drug hypersensitivity [Recovered/Resolved]
  - Glomerular filtration rate increased [Not Recovered/Not Resolved]

NARRATIVE: CASE EVENT DATE: 20180405
